FAERS Safety Report 5002465-3 (Version None)
Quarter: 2006Q2

REPORT INFORMATION
  Report Type: 
  Country: None (occurrence: None)
  Receive Date: 20060510
  Receipt Date: 20060428
  Transmission Date: 20061013
  Serious: Yes (Hospitalization)
  Sender: FDA-Public Use
  Company Number: DEWYE603705MAY06

PATIENT
  Sex: Female

DRUGS (1)
  1. VENLAFAXINE HCL [Suspect]
     Dosage: 75 MG 2X PER 1 DAY
     Dates: end: 20060401

REACTIONS (2)
  - DRUG EXPOSURE DURING PREGNANCY [None]
  - UNEVALUABLE EVENT [None]
